FAERS Safety Report 4474816-X (Version None)
Quarter: 2004Q4

REPORT INFORMATION
  Report Type: 
  Country: None (occurrence: None)
  Receive Date: 20041014
  Receipt Date: 20041006
  Transmission Date: 20050328
  Serious: Yes (Hospitalization)
  Sender: FDA-Public Use
  Company Number: BR-MERCK-0410BRA00299

PATIENT
  Age: 68 Year
  Sex: Female

DRUGS (2)
  1. VIOXX [Suspect]
     Indication: DENTAL DISCOMFORT
     Route: 048
     Dates: start: 20040201, end: 20040904
  2. VIOXX [Suspect]
     Indication: SINUSITIS
     Route: 048
     Dates: start: 20040201, end: 20040904

REACTIONS (1)
  - THROMBOSIS [None]
